FAERS Safety Report 4988991-1 (Version None)
Quarter: 2006Q2

REPORT INFORMATION
  Report Type: 
  Country: None (occurrence: None)
  Receive Date: 20060425
  Receipt Date: 20060414
  Transmission Date: 20061013
  Serious: Yes (Hospitalization)
  Sender: FDA-Public Use
  Company Number: 2006BI000953

PATIENT
  Age: 43 Year
  Sex: Female

DRUGS (7)
  1. AVONEX [Suspect]
     Indication: MULTIPLE SCLEROSIS
     Dates: start: 20030301, end: 20040101
  2. AVONEX [Suspect]
     Indication: MULTIPLE SCLEROSIS
     Dates: start: 20040101
  3. TOPAMAX [Concomitant]
  4. DARVOCET [Concomitant]
  5. ZOLOFT [Concomitant]
  6. BACLOFEN [Concomitant]
  7. PHENERGAN HCL [Concomitant]

REACTIONS (3)
  - HYSTERECTOMY [None]
  - INFLUENZA LIKE ILLNESS [None]
  - PROCEDURAL PAIN [None]
